FAERS Safety Report 7904530 (Version 2)
Quarter: 2013Q2

REPORT INFORMATION
  Report Type: Report from Study
  Country: US (occurrence: US)
  Receive Date: 20110419
  Receipt Date: 20130409
  Transmission Date: 20140414
  Serious: Yes (Hospitalization)
  Sender: FDA-Public Use
  Company Number: US-ACTELION-A-US2011-46167

PATIENT
  Age: 52 Year
  Sex: Female

DRUGS (1)
  1. TRACLEER [Suspect]
     Indication: PULMONARY ARTERIAL HYPERTENSION
     Dosage: UNK
     Route: 048

REACTIONS (6)
  - Muscular weakness [Unknown]
  - Dyspnoea [Recovered/Resolved]
  - Swelling face [Unknown]
  - Fatigue [Recovered/Resolved]
  - Chest pain [Unknown]
  - Decreased appetite [Recovered/Resolved]
